FAERS Safety Report 15360384 (Version 1)
Quarter: 2018Q3

REPORT INFORMATION
  Report Type: Spontaneous
  Country: US (occurrence: US)
  Receive Date: 20180907
  Receipt Date: 20180907
  Transmission Date: 20181010
  Serious: No
  Sender: FDA-Public Use
  Company Number: US-PFIZER INC-2018359817

PATIENT
  Age: 77 Year
  Sex: Female
  Weight: 54 kg

DRUGS (4)
  1. PREPARATION H [PARAFFIN, LIQUID;PETROLATUM;PHENYLEPHRINE HYDROCHLORIDE [Concomitant]
     Dosage: UNK, 2X/DAY
  2. RECTICARE WIPES [Concomitant]
     Dosage: UNK
  3. LYRICA [Suspect]
     Active Substance: PREGABALIN
     Dosage: UNK
  4. PREPARATION H [PARAFFIN, LIQUID;PETROLATUM;PHENYLEPHRINE HYDROCHLORIDE [Concomitant]
     Indication: HAEMORRHOIDS
     Dosage: UNK, 1X/DAY

REACTIONS (4)
  - Speech disorder [Unknown]
  - Burning sensation [Unknown]
  - Paraesthesia [Unknown]
  - Pruritus [Unknown]
